FAERS Safety Report 13157434 (Version 2)
Quarter: 2017Q2

REPORT INFORMATION
  Report Type: Spontaneous
  Country: BE (occurrence: BE)
  Receive Date: 20170127
  Receipt Date: 20170411
  Transmission Date: 20170830
  Serious: Yes (Death, Hospitalization, Disabling, Other)
  Sender: FDA-Public Use
  Company Number: BE-ASTRAZENECA-2017SE09344

PATIENT
  Age: 27693 Day
  Sex: Male

DRUGS (3)
  1. SEROQUEL [Suspect]
     Active Substance: QUETIAPINE FUMARATE
     Indication: AGITATION
     Route: 048
  2. MAXIPIME [Concomitant]
     Active Substance: CEFEPIME HYDROCHLORIDE
     Indication: INFECTION
     Dosage: DAILY DOSE OF 6 G/L
  3. ELTHYRONE [Concomitant]
     Active Substance: LEVOTHYROXINE
     Indication: THYROIDECTOMY
     Dosage: DAILY DOSE OF 150 MG/DAY
     Route: 048

REACTIONS (9)
  - Pneumonia [Unknown]
  - Hip fracture [Unknown]
  - Pneumothorax [Unknown]
  - Decubitus ulcer [Unknown]
  - Faecalith [Unknown]
  - Fall [Fatal]
  - Asthenia [Unknown]
  - Malnutrition [Unknown]
  - Dysphagia [Not Recovered/Not Resolved]

NARRATIVE: CASE EVENT DATE: 20160506
